FAERS Safety Report 21561841 (Version 1)
Quarter: 2022Q4

REPORT INFORMATION
  Report Type: Report from Study
  Country: US (occurrence: US)
  Receive Date: 20221107
  Receipt Date: 20221107
  Transmission Date: 20230112
  Serious: No
  Sender: FDA-Public Use
  Company Number: US-ABBVIE-21K-163-3910437-00

PATIENT
  Sex: Female

DRUGS (18)
  1. VENCLEXTA [Suspect]
     Active Substance: VENETOCLAX
     Indication: Myelodysplastic syndrome
     Route: 048
  2. VENCLEXTA [Suspect]
     Active Substance: VENETOCLAX
     Indication: Myelodysplastic syndrome
     Route: 048
  3. PRILOSEC [Concomitant]
     Active Substance: OMEPRAZOLE MAGNESIUM
     Indication: Product used for unknown indication
  4. ZEBETA [Concomitant]
     Active Substance: BISOPROLOL FUMARATE
     Indication: Chronic left ventricular failure
     Route: 048
  5. LISINOPRIL [Concomitant]
     Active Substance: LISINOPRIL
     Indication: Cardiomyopathy
     Route: 048
  6. ALDACTONE [Concomitant]
     Active Substance: SPIRONOLACTONE
     Indication: Product used for unknown indication
  7. NOXAFIL [Concomitant]
     Active Substance: POSACONAZOLE
     Indication: Myelodysplastic syndrome
     Dosage: 3 TABS DAILY, ?EC
     Route: 048
  8. EMLA [Concomitant]
     Active Substance: LIDOCAINE\PRILOCAINE
     Indication: Myelodysplastic syndrome
     Dosage: ONE APPLICATION TO AFFECTED AREA AS NEEDED? 2.5%-2.5% CREAM
  9. TYLENOL [Concomitant]
     Active Substance: ACETAMINOPHEN
     Indication: Product used for unknown indication
     Route: 048
  10. TYLENOL [Concomitant]
     Active Substance: ACETAMINOPHEN
     Indication: Product used for unknown indication
     Route: 048
  11. LOVENOX [Concomitant]
     Active Substance: ENOXAPARIN SODIUM
     Indication: Myelodysplastic syndrome
     Route: 058
  12. MELATONIN [Concomitant]
     Active Substance: MELATONIN
     Indication: Product used for unknown indication
     Route: 048
  13. MAXITROL [Concomitant]
     Active Substance: DEXAMETHASONE\NEOMYCIN SULFATE\POLYMYXIN B SULFATE
     Indication: Product used for unknown indication
     Dosage: 0.25 INCHES BY LEFT EYE LID ROUTE AT BEDTIME??(3.5-10000-0.1 OINTMENT)
  14. IMODIUM [Concomitant]
     Active Substance: LOPERAMIDE HYDROCHLORIDE
     Indication: Product used for unknown indication
     Route: 048
  15. Norco 5 [Concomitant]
     Indication: Product used for unknown indication
     Dosage: 5MG/325MG
     Route: 048
  16. ALLEGRA [Concomitant]
     Active Substance: FEXOFENADINE HYDROCHLORIDE
     Indication: Product used for unknown indication
     Route: 048
  17. PROTONIX [Concomitant]
     Active Substance: PANTOPRAZOLE SODIUM
     Indication: Product used for unknown indication
     Dosage: EC
     Route: 048
  18. ZOFRAN [Concomitant]
     Active Substance: ONDANSETRON HYDROCHLORIDE
     Indication: Nausea
     Dosage: PLACE 1 TAB ON TONGUE AND LET DISSOLVE??ODT
     Route: 060

REACTIONS (1)
  - Off label use [Unknown]
